FAERS Safety Report 7999300-8 (Version None)
Quarter: 2011Q4

REPORT INFORMATION
  Report Type: 
  Country: None (occurrence: None)
  Receive Date: 20111221
  Receipt Date: 20111214
  Transmission Date: 20120403
  Serious: Yes (Hospitalization)
  Sender: FDA-Public Use
  Company Number: PHHY2011ES108979

PATIENT
  Age: 79 Year
  Sex: Male

DRUGS (1)
  1. ALENDRONIC ACID [Suspect]
     Dosage: 70 MG, WEEKLY
     Route: 048

REACTIONS (4)
  - OESOPHAGEAL STENOSIS [None]
  - SYNCOPE [None]
  - CHOKING [None]
  - OESOPHAGEAL ULCER [None]
